FAERS Safety Report 18320389 (Version 1)
Quarter: 2020Q3

REPORT INFORMATION
  Report Type: Spontaneous
  Country: US (occurrence: US)
  Receive Date: 20200928
  Receipt Date: 20200928
  Transmission Date: 20201103
  Serious: No
  Sender: FDA-Public Use
  Company Number: US-009507513-2009USA009141

PATIENT
  Age: 36 Year
  Sex: Female

DRUGS (11)
  1. GANIRELIX ACETATE INJECTION [Concomitant]
     Active Substance: GANIRELIX ACETATE
     Dosage: STRENGHT: 250/0.5
     Dates: start: 20200923
  2. ENDOMETRIN [Concomitant]
     Active Substance: PROGESTERONE
     Dosage: UNK
     Dates: start: 20200923
  3. VITAMINS (UNSPECIFIED) [Concomitant]
     Active Substance: VITAMINS
     Dosage: UNK
     Dates: start: 20190227
  4. CLARITIN [Concomitant]
     Active Substance: LORATADINE
     Dosage: UNK
     Dates: start: 20200605
  5. PROGESTERONE. [Concomitant]
     Active Substance: PROGESTERONE
     Dosage: UNK
     Dates: start: 20200923
  6. MENOPUR [Concomitant]
     Active Substance: FOLLITROPIN\LUTEINIZING HORMONE
     Dosage: STRENGHT: 75 UNITS
     Dates: start: 20200923
  7. VITAMIN D (UNSPECIFIED) [Concomitant]
     Active Substance: VITAMIN D NOS
     Dosage: STRENGHT: 1000 UNITS
     Dates: start: 20200605
  8. FOLLISTIM AQ [Suspect]
     Active Substance: FOLLITROPIN
     Indication: INFERTILITY
     Dosage: 300 DOSAGE FORM, QD
     Route: 058
     Dates: start: 20190227
  9. FOLLISTIM AQ [Suspect]
     Active Substance: FOLLITROPIN
  10. ESTRADIOL. [Concomitant]
     Active Substance: ESTRADIOL
     Dosage: UNK
     Dates: start: 20200805
  11. SERTRALINE HYDROCHLORIDE. [Concomitant]
     Active Substance: SERTRALINE HYDROCHLORIDE
     Dosage: UNK
     Dates: start: 20200807

REACTIONS (1)
  - Headache [Unknown]

NARRATIVE: CASE EVENT DATE: 202006
